FAERS Safety Report 24765097 (Version 3)
Quarter: 2025Q2

REPORT INFORMATION
  Report Type: Spontaneous
  Country: US (occurrence: US)
  Receive Date: 20241223
  Receipt Date: 20250530
  Transmission Date: 20250717
  Serious: Yes (Hospitalization)
  Sender: DOMPE FARMACEUTICI
  Company Number: US-FARMAPROD-202412-4194

PATIENT
  Sex: Female

DRUGS (18)
  1. OXERVATE [Suspect]
     Active Substance: CENEGERMIN-BKBJ
     Indication: Neurotrophic keratopathy
     Route: 047
     Dates: start: 20241103, end: 20250102
  2. OXERVATE [Suspect]
     Active Substance: CENEGERMIN-BKBJ
     Dates: start: 20250423
  3. CEFUROXIME [Concomitant]
     Active Substance: CEFUROXIME
  4. EMGALITY [Concomitant]
     Active Substance: GALCANEZUMAB-GNLM
  5. BOTOX [Concomitant]
     Active Substance: ONABOTULINUMTOXINA
  6. VARENICLINE TARTRATE [Concomitant]
     Active Substance: VARENICLINE TARTRATE
  7. SERTRALINE HYDROCHLORIDE [Concomitant]
     Active Substance: SERTRALINE HYDROCHLORIDE
  8. OMEPRAZOLE [Concomitant]
     Active Substance: OMEPRAZOLE
  9. SEROQUEL XR [Concomitant]
     Active Substance: QUETIAPINE FUMARATE
  10. AMITRIPTYLINE HYDROCHLORIDE [Concomitant]
     Active Substance: AMITRIPTYLINE HYDROCHLORIDE
  11. SPIRONOLACTONE [Concomitant]
     Active Substance: SPIRONOLACTONE
  12. IMITREX [Concomitant]
     Active Substance: SUMATRIPTAN SUCCINATE
  13. ONDANSETRON HYDROCHLORIDE [Concomitant]
     Active Substance: ONDANSETRON HYDROCHLORIDE
  14. ACETAMINOPHEN\HYDROCODONE [Concomitant]
     Active Substance: ACETAMINOPHEN\HYDROCODONE
  15. MOVANTIK [Concomitant]
     Active Substance: NALOXEGOL OXALATE
  16. MORPHINE SULFATE [Concomitant]
     Active Substance: MORPHINE SULFATE
  17. LEVOTHYROXINE SODIUM [Concomitant]
     Active Substance: LEVOTHYROXINE SODIUM
  18. SYSTANE ULTRA PF [Concomitant]

REACTIONS (2)
  - Urinary tract infection [Unknown]
  - Therapy interrupted [Unknown]
